FAERS Safety Report 10182016 (Version 2)
Quarter: 2014Q2

REPORT INFORMATION
  Report Type: Spontaneous
  Country: GB (occurrence: GB)
  Receive Date: 20140519
  Receipt Date: 20140604
  Transmission Date: 20141212
  Serious: Yes (Life-Threatening, Hospitalization)
  Sender: FDA-Public Use
  Company Number: GB-TEVA-480234ISR

PATIENT
  Age: 78 Year
  Sex: Male

DRUGS (13)
  1. CARBOPLATIN [Suspect]
     Dates: start: 2009
  2. CARBOPLATIN [Suspect]
     Dates: start: 20090512
  3. CARBOPLATIN [Suspect]
     Dates: start: 20090519
  4. CARBOPLATIN [Suspect]
     Dates: start: 20090212
  5. DALTEPARIN SODIUM [Suspect]
     Indication: LUNG NEOPLASM MALIGNANT
     Dosage: 5000 IU (INTERNATIONAL UNIT) DAILY;
     Route: 058
     Dates: start: 20090310, end: 20090525
  6. DALTEPARIN SODIUM [Suspect]
     Dates: start: 20090716, end: 20090724
  7. ASPIRIN [Suspect]
     Route: 048
     Dates: start: 20001205, end: 20090525
  8. GEMCITABINE [Suspect]
     Dates: start: 2009
  9. GEMCITABINE [Suspect]
     Dates: start: 20090519
  10. GEMCITABINE [Suspect]
     Dates: start: 20090212
  11. GEMCITABINE [Suspect]
     Dates: start: 20090512
  12. SIMVASTATIN [Concomitant]
  13. SOTALOL [Concomitant]
     Dates: start: 20000224

REACTIONS (4)
  - Epistaxis [Recovered/Resolved]
  - Platelet count decreased [Recovered/Resolved]
  - Neutrophil count decreased [Recovered/Resolved]
  - White blood cell count decreased [Recovered/Resolved]
